FAERS Safety Report 23104987 (Version 1)
Quarter: 2023Q4

REPORT INFORMATION
  Report Type: Spontaneous
  Country: EG (occurrence: EG)
  Receive Date: 20231025
  Receipt Date: 20231025
  Transmission Date: 20240110
  Serious: Yes (Life-Threatening)
  Sender: FDA-Public Use
  Company Number: EG-TASMAN PHARMA, INC.-2023TSM00170

PATIENT
  Sex: Male

DRUGS (1)
  1. CLOZAPINE [Suspect]
     Active Substance: CLOZAPINE
     Route: 048

REACTIONS (2)
  - Suicide attempt [Unknown]
  - Toxicity to various agents [Unknown]
